FAERS Safety Report 18088981 (Version 2)
Quarter: 2020Q4

REPORT INFORMATION
  Report Type: Report from Study
  Country: ES (occurrence: ES)
  Receive Date: 20200729
  Receipt Date: 20201001
  Transmission Date: 20210113
  Serious: Yes (Other)
  Sender: FDA-Public Use
  Company Number: ES-NEUROCRINE BIOSCIENCES INC.-2020NBI02640

PATIENT
  Age: 76 Year
  Sex: Male

DRUGS (6)
  1. SINEMET [Concomitant]
     Active Substance: CARBIDOPA\LEVODOPA
     Dosage: UNKNOWN
  2. AMANTADINE. [Concomitant]
     Active Substance: AMANTADINE HYDROCHLORIDE
     Dosage: UNKNOWN
  3. LEVODOPA [Concomitant]
     Active Substance: LEVODOPA
     Dosage: 200 (NO UNIT PROVIDED), UNKNOWN
  4. REQUIP [Concomitant]
     Active Substance: ROPINIROLE HYDROCHLORIDE
     Dosage: UNKNOWN
  5. XADAGO [Concomitant]
     Active Substance: SAFINAMIDE MESYLATE
     Dosage: UNKNOWN
  6. ONGENTYS [Suspect]
     Active Substance: OPICAPONE
     Indication: PARKINSON^S DISEASE
     Dosage: UNKNOWN
     Route: 065

REACTIONS (15)
  - Constipation [Unknown]
  - Saliva altered [Unknown]
  - Pain [Unknown]
  - Delusion [Unknown]
  - Dystonia [Unknown]
  - Therapeutic response shortened [Unknown]
  - Balance disorder [Unknown]
  - Gait disturbance [Unknown]
  - Anxiety [Unknown]
  - Bradykinesia [Unknown]
  - Freezing phenomenon [Unknown]
  - Depression [Unknown]
  - Hallucination [Unknown]
  - Dysphagia [Unknown]
  - Sleep disorder [Unknown]
